FAERS Safety Report 16993666 (Version 2)
Quarter: 2019Q4

REPORT INFORMATION
  Report Type: Report from Study
  Country: FR (occurrence: FR)
  Receive Date: 20191105
  Receipt Date: 20191115
  Transmission Date: 20200122
  Serious: Yes (Hospitalization)
  Sender: FDA-Public Use
  Company Number: FR-PFIZER INC-2019466632

PATIENT
  Age: 58 Year
  Sex: Male
  Weight: 94 kg

DRUGS (10)
  1. CISPLATIN. [Suspect]
     Active Substance: CISPLATIN
     Dosage: 152 MG, 1X/DAY
     Dates: start: 20190124
  2. LERCAN [Concomitant]
     Active Substance: LERCANIDIPINE
     Dosage: 1 DF, 1X/DAY
  3. GEMCITABINE HYDROCHLORIDE. [Suspect]
     Active Substance: GEMCITABINE HYDROCHLORIDE
     Dosage: 2200 MG, 1X/DAY
     Dates: start: 20190124
  4. METFORMIN [Concomitant]
     Active Substance: METFORMIN HYDROCHLORIDE
     Dosage: 1 DF, 2X/DAY
  5. AVELUMAB [Suspect]
     Active Substance: AVELUMAB
     Dosage: 940 MG, 1X/DAY
     Dates: start: 20190124
  6. DUROGESIC [Concomitant]
     Active Substance: FENTANYL
     Dosage: 25 UG/72H
  7. ACTISKENAN [Concomitant]
     Active Substance: MORPHINE SULFATE
     Dosage: UNK UNK, AS NEEDED
  8. SPIRONOLACTONE. [Concomitant]
     Active Substance: SPIRONOLACTONE
     Dosage: 1 DF, 1X/DAY
  9. COAPROVEL [Concomitant]
     Active Substance: HYDROCHLOROTHIAZIDE\IRBESARTAN
     Dosage: 1 DF, 1X/DAY
  10. ZARZIO [Concomitant]
     Active Substance: FILGRASTIM
     Dosage: D5 TO D7 AND FROM D9 TO D12 EVERY THREE WEEKS
     Route: 058

REACTIONS (2)
  - Acute kidney injury [Not Recovered/Not Resolved]
  - Escherichia pyelonephritis [Not Recovered/Not Resolved]

NARRATIVE: CASE EVENT DATE: 20190128
